FAERS Safety Report 8264285-6 (Version None)
Quarter: 2012Q2

REPORT INFORMATION
  Report Type: 
  Country: None (occurrence: None)
  Receive Date: 20120406
  Receipt Date: 20120402
  Transmission Date: 20120825
  Serious: No
  Sender: FDA-Public Use
  Company Number: US-PFIZER INC-2012082976

PATIENT
  Sex: Female
  Weight: 45.8 kg

DRUGS (5)
  1. ATIVAN [Concomitant]
     Dosage: UNK
  2. METOPROLOL [Concomitant]
     Dosage: UNK
  3. SUTENT [Suspect]
     Dosage: 12.5 MG, DAILY
     Dates: start: 20120101
  4. LISINOPRIL [Concomitant]
     Dosage: UNK
  5. NORVASC [Concomitant]
     Dosage: UNK

REACTIONS (1)
  - DECREASED APPETITE [None]
